FAERS Safety Report 14933086 (Version 2)
Quarter: 2018Q2

REPORT INFORMATION
  Report Type: Spontaneous
  Country: US (occurrence: US)
  Receive Date: 20180524
  Receipt Date: 20180530
  Transmission Date: 20180711
  Serious: No
  Sender: FDA-Public Use
  Company Number: US-PFIZER INC-2018099634

PATIENT
  Sex: Female
  Weight: 77 kg

DRUGS (4)
  1. DOXIL [Concomitant]
     Active Substance: DOXORUBICIN HYDROCHLORIDE
     Indication: CHEMOTHERAPY
     Dosage: UNK
  2. DOCETAXEL. [Suspect]
     Active Substance: DOCETAXEL
     Indication: BREAST CANCER FEMALE
     Dosage: UNK, CYCLIC (EVERY WEEK), 4 CYCLES
     Dates: start: 20140702, end: 20140813
  3. FASLODEX [Concomitant]
     Active Substance: FULVESTRANT
     Indication: CHEMOTHERAPY
     Dosage: UNK
  4. ADRIAMYCIN [Concomitant]
     Active Substance: DOXORUBICIN HYDROCHLORIDE
     Indication: CHEMOTHERAPY
     Dosage: UNK

REACTIONS (4)
  - Hair disorder [Unknown]
  - Hair colour changes [Unknown]
  - Alopecia [Not Recovered/Not Resolved]
  - Hair texture abnormal [Unknown]
